FAERS Safety Report 6253741-8 (Version None)
Quarter: 2009Q2

REPORT INFORMATION
  Report Type: 
  Country: None (occurrence: None)
  Receive Date: 20090630
  Receipt Date: 20090616
  Transmission Date: 20091009
  Serious: Yes (Hospitalization)
  Sender: FDA-Public Use
  Company Number: 8047913

PATIENT
  Sex: Female
  Weight: 85.2 kg

DRUGS (10)
  1. CIMZIA [Suspect]
     Indication: CROHN'S DISEASE
     Dosage: 400 MG SC
     Route: 058
     Dates: start: 20090602
  2. KEFLEX [Concomitant]
  3. COMPAZINE [Concomitant]
  4. SYNTHROID [Concomitant]
  5. POTASSIUM CHLORIDE [Concomitant]
  6. FENTANYL-100 [Concomitant]
  7. CELEXA [Concomitant]
  8. ATIVAN [Concomitant]
  9. REMERON [Concomitant]
  10. PRILOSEC [Concomitant]

REACTIONS (3)
  - ASCITES [None]
  - OEDEMA PERIPHERAL [None]
  - PERICARDIAL EFFUSION [None]
